FAERS Safety Report 12630929 (Version 2)
Quarter: 2016Q3

REPORT INFORMATION
  Report Type: Spontaneous
  Country: US (occurrence: US)
  Receive Date: 20160808
  Receipt Date: 20160808
  Transmission Date: 20161109
  Serious: No
  Sender: FDA-Public Use
  Company Number: US-BEH-2014044084

PATIENT
  Sex: Male
  Weight: 49 kg

DRUGS (27)
  1. HIZENTRA [Suspect]
     Active Substance: HUMAN IMMUNOGLOBULIN G
     Indication: IMMUNODEFICIENCY COMMON VARIABLE
     Dosage: 10 GM 50 ML; 10 GM WEEKLY VIA MULTIPLE SITESOVER 1-2 HOURS
     Route: 058
  2. LIDOCAINE PRILOCAINE [Concomitant]
     Active Substance: LIDOCAINE\PRILOCAINE
  3. HIZENTRA [Suspect]
     Active Substance: HUMAN IMMUNOGLOBULIN G
     Dosage: 10 GM 50 ML; 10 GM WEEKLY
     Route: 058
  4. EPIPEN [Concomitant]
     Active Substance: EPINEPHRINE
  5. VITAMIN C [Concomitant]
     Active Substance: ASCORBIC ACID
  6. HIZENTRA [Suspect]
     Active Substance: HUMAN IMMUNOGLOBULIN G
     Route: 058
  7. DIPHENHYDRAMINE. [Concomitant]
     Active Substance: DIPHENHYDRAMINE
  8. CENTRUM SILVER [Concomitant]
     Active Substance: MINERALS\VITAMINS
  9. AVELOX [Concomitant]
     Active Substance: MOXIFLOXACIN HYDROCHLORIDE
  10. ADVAIR HFA [Concomitant]
     Active Substance: FLUTICASONE PROPIONATE\SALMETEROL XINAFOATE
  11. SPIRIVA [Concomitant]
     Active Substance: TIOTROPIUM BROMIDE MONOHYDRATE
  12. ATROVENT [Concomitant]
     Active Substance: IPRATROPIUM BROMIDE
  13. ACETAMINOPHEN. [Concomitant]
     Active Substance: ACETAMINOPHEN
  14. COENZYME Q10 [Concomitant]
     Active Substance: UBIDECARENONE
  15. FISH OIL [Concomitant]
     Active Substance: FISH OIL
  16. PROBIOTIC [Concomitant]
     Active Substance: PROBIOTICS NOS
  17. LMX [Concomitant]
     Active Substance: LIDOCAINE
     Dosage: STRENGTH: 4%
     Route: 061
  18. ETHAMBUTOL [Concomitant]
     Active Substance: ETHAMBUTOL HYDROCHLORIDE
     Dosage: 2 TABS DAILY
     Route: 048
  19. ASPIRIN. [Concomitant]
     Active Substance: ASPIRIN
  20. BUDESONIDE. [Concomitant]
     Active Substance: BUDESONIDE
  21. ALBUTEROL. [Concomitant]
     Active Substance: ALBUTEROL
  22. VITAMIN B [Concomitant]
     Active Substance: VITAMIN B
  23. PROAIR HFA [Concomitant]
     Active Substance: ALBUTEROL SULFATE
  24. VITAMIN D [Concomitant]
     Active Substance: CHOLECALCIFEROL
  25. MOXIFLOXACIN. [Concomitant]
     Active Substance: MOXIFLOXACIN
  26. PREDNISONE. [Concomitant]
     Active Substance: PREDNISONE
  27. AZITHROMYCIN ANHYDROUS. [Concomitant]
     Active Substance: AZITHROMYCIN ANHYDROUS

REACTIONS (2)
  - Dyspnoea [Unknown]
  - Oedema [Unknown]
